FAERS Safety Report 6717326-9 (Version None)
Quarter: 2010Q2

REPORT INFORMATION
  Report Type: 
  Country: None (occurrence: None)
  Receive Date: 20100510
  Receipt Date: 20100504
  Transmission Date: 20101027
  Serious: Yes (Death)
  Sender: FDA-Public Use
  Company Number: CH-ASTRAZENECA-2010SE20116

PATIENT
  Age: 80 Year
  Sex: Female

DRUGS (9)
  1. TENORETIC 100 [Suspect]
     Route: 048
  2. CORDARONE [Suspect]
     Route: 048
  3. LUDIOMIL [Suspect]
     Route: 048
  4. TRAMAL [Suspect]
     Dosage: AS REQUIRED
  5. COZAAR [Concomitant]
     Route: 048
  6. XANAX [Concomitant]
     Route: 048
  7. NEXIUM [Concomitant]
     Route: 048
  8. LEVOTHYROXINE SODIUM [Concomitant]
     Route: 048
  9. ACIDUM FOLICUM [Concomitant]
     Route: 048

REACTIONS (2)
  - CARDIO-RESPIRATORY ARREST [None]
  - DEATH [None]
